FAERS Safety Report 14126920 (Version 5)
Quarter: 2019Q3

REPORT INFORMATION
  Report Type: Spontaneous
  Country: JP (occurrence: JP)
  Receive Date: 20171025
  Receipt Date: 20190729
  Transmission Date: 20191004
  Serious: Yes (Death, Hospitalization, Other)
  Sender: FDA-Public Use
  Company Number: JP-ROCHE-2013131

PATIENT
  Age: 41 Year
  Sex: Female
  Weight: 55 kg

DRUGS (3)
  1. PACLITAXEL. [Concomitant]
     Active Substance: PACLITAXEL
     Indication: BREAST CANCER
     Dosage: THE FRACTIONATION DOSE FREQUENCY IS UNCERTAIN. ?DOSE INTERVAL UNCERTAINTY
     Route: 041
     Dates: start: 20160526, end: 20160602
  2. AVASTIN [Suspect]
     Active Substance: BEVACIZUMAB
     Indication: BREAST CANCER
     Route: 041
     Dates: start: 20160526, end: 20160915
  3. PACLITAXEL. [Concomitant]
     Active Substance: PACLITAXEL
     Indication: BREAST CANCER
     Dosage: THE FRACTIONATION DOSE FREQUENCY IS UNCERTAIN. ?DOSE INTERVAL UNCERTAINTY
     Route: 041
     Dates: start: 20160623, end: 20160818

REACTIONS (8)
  - Ascites [Fatal]
  - Bacteraemia [Unknown]
  - Hepatic failure [Fatal]
  - Tumour associated fever [Unknown]
  - Oesophageal varices haemorrhage [Fatal]
  - Hepatic cirrhosis [Fatal]
  - Febrile neutropenia [Recovered/Resolved]
  - Hepatic atrophy [Fatal]

NARRATIVE: CASE EVENT DATE: 20160605
